FAERS Safety Report 25893225 (Version 1)
Quarter: 2025Q4

REPORT INFORMATION
  Report Type: Spontaneous
  Country: US (occurrence: US)
  Receive Date: 20251008
  Receipt Date: 20251008
  Transmission Date: 20260118
  Serious: No
  Sender: ROCHE
  Company Number: US-ROCHE-10000402892

PATIENT
  Sex: Female

DRUGS (2)
  1. ACTEMRA [Suspect]
     Active Substance: TOCILIZUMAB
     Indication: Psoriatic arthropathy
     Dosage: STRENGTH: 162MG/0.9M
     Route: 058
     Dates: start: 202502
  2. ACTEMRA [Suspect]
     Active Substance: TOCILIZUMAB
     Indication: Arthralgia

REACTIONS (2)
  - Psoriatic arthropathy [Unknown]
  - Off label use [Unknown]
